FAERS Safety Report 15798094 (Version 1)
Quarter: 2019Q1

REPORT INFORMATION
  Report Type: Spontaneous
  Country: FR (occurrence: FR)
  Receive Date: 20190108
  Receipt Date: 20190108
  Transmission Date: 20190417
  Serious: Yes (Other)
  Sender: FDA-Public Use
  Company Number: FR-PFIZER INC-2019005913

PATIENT
  Age: 37 Year
  Sex: Female

DRUGS (5)
  1. IZALGI [Suspect]
     Active Substance: ACETAMINOPHEN\OPIUM
     Dosage: 2 DF, 1X/DAY
     Route: 048
     Dates: start: 2015
  2. LYRICA [Suspect]
     Active Substance: PREGABALIN
     Dosage: UNK
     Route: 048
     Dates: start: 2015
  3. OXYCODONE [Suspect]
     Active Substance: OXYCODONE
     Dosage: 10 MG, 1X/DAY
     Route: 048
     Dates: start: 2015
  4. TRAMADOL. [Suspect]
     Active Substance: TRAMADOL
     Dosage: 200 MG, 1X/DAY
     Route: 048
     Dates: start: 2015
  5. CODEINE [Suspect]
     Active Substance: CODEINE
     Dosage: 60 MG, 1X/DAY
     Dates: start: 2015

REACTIONS (3)
  - Drug abuse [Not Recovered/Not Resolved]
  - Withdrawal syndrome [Recovered/Resolved]
  - Agitation [Recovered/Resolved]

NARRATIVE: CASE EVENT DATE: 2017
